FAERS Safety Report 7234288-9 (Version None)
Quarter: 2011Q1

REPORT INFORMATION
  Report Type: 
  Country: None (occurrence: None)
  Receive Date: 20110119
  Receipt Date: 20110111
  Transmission Date: 20110831
  Serious: Yes (Other)
  Sender: FDA-Public Use
  Company Number: DE-ROCHE-752137

PATIENT
  Sex: Male

DRUGS (2)
  1. MARCUMAR [Suspect]
     Indication: ATRIAL FIBRILLATION
     Route: 065
  2. MIRCERA [Suspect]
     Dosage: 1 DOSAGE FORM
     Route: 065

REACTIONS (3)
  - GASTROINTESTINAL HAEMORRHAGE [None]
  - URETHRAL HAEMORRHAGE [None]
  - RENAL HAEMORRHAGE [None]
